FAERS Safety Report 6967921-7 (Version None)
Quarter: 2010Q3

REPORT INFORMATION
  Report Type: 
  Country: None (occurrence: None)
  Receive Date: 20100907
  Receipt Date: 20100826
  Transmission Date: 20110219
  Serious: Yes (Hospitalization)
  Sender: FDA-Public Use
  Company Number: FR-PFIZER INC-2010092396

PATIENT
  Age: 77 Year
  Sex: Male
  Weight: 74.8 kg

DRUGS (15)
  1. SUNITINIB MALATE [Suspect]
     Dosage: 37.5 MG
     Route: 048
     Dates: start: 20090321, end: 20091117
  2. METHOTREXATE SODIUM [Suspect]
  3. DOXORUBICIN HCL [Suspect]
  4. VINBLASTINE [Suspect]
  5. AMOXICILLIN [Concomitant]
     Dosage: 2 DF, 3X/DAY
     Dates: start: 20091214
  6. DIMETANE [Concomitant]
     Dosage: 3 DF, 1X/DAY
  7. IKOREL [Concomitant]
     Dosage: 1 DF, 2X/DAY (ONE IN THE MORNINF AND ONE IN THE EVENING)
  8. TARDYFERON [Concomitant]
     Dosage: 1 DF, 1X/DAY, (IN THE MORNING)
  9. METFORMIN [Concomitant]
     Dosage: 1 DF, 3X/DAY (IN THE MORNING, IN LUNCH AND IN THE EVENING)
  10. AMIODARONE [Concomitant]
     Dosage: 1 DF, 1X/DAY, 5 DAYS OUT OF 7
  11. ZESTRIL [Concomitant]
     Dosage: 1 DF, 2X/DAY, IN THE MORNING AND IN THE EVENING
  12. OMEPRAZOLE [Concomitant]
     Dosage: 1 DF, 1X/DAY, IN THE EVENING
  13. VITAMIN D [Concomitant]
     Dosage: UNK
  14. PREVISCAN [Concomitant]
     Dosage: 1 DF PER DAY ALTERNATING WITH 1DF AND A QUARTER
  15. AUGMENTIN '125' [Concomitant]
     Dosage: 3 DF, 3X/DAY

REACTIONS (1)
  - GENERAL PHYSICAL HEALTH DETERIORATION [None]
